FAERS Safety Report 7552932-3 (Version None)
Quarter: 2011Q2

REPORT INFORMATION
  Report Type: 
  Country: None (occurrence: None)
  Receive Date: 20110616
  Receipt Date: 20110309
  Transmission Date: 20111010
  Serious: No
  Sender: FDA-Public Use
  Company Number: US-ASTRAZENECA-2011SE13543

PATIENT
  Age: 72 Year
  Sex: Female

DRUGS (3)
  1. AREDIA [Concomitant]
  2. FASLODEX [Suspect]
     Indication: BREAST CANCER
     Route: 030
     Dates: start: 20110101
  3. ARIMIDEX [Suspect]
     Indication: BREAST CANCER
     Route: 048
     Dates: end: 20100101

REACTIONS (2)
  - INJECTION SITE PAIN [None]
  - TUMOUR MARKER INCREASED [None]
